FAERS Safety Report 24611339 (Version 5)
Quarter: 2024Q4

REPORT INFORMATION
  Report Type: Report from Study
  Country: CA (occurrence: CA)
  Receive Date: 20241113
  Receipt Date: 20241128
  Transmission Date: 20250115
  Serious: Yes (Life-Threatening, Hospitalization, Other)
  Sender: CELLTRION
  Company Number: CA-CELLTRION INC.-2024CA026388

PATIENT

DRUGS (9)
  1. INFLIXIMAB-DYYB [Suspect]
     Active Substance: INFLIXIMAB-DYYB
     Indication: Crohn^s disease
     Dosage: 120 MILLIGRAM, Q2WEEKS
     Route: 058
     Dates: start: 20241017
  2. ACETAMINOPHEN [Concomitant]
     Active Substance: ACETAMINOPHEN
  3. GRAVOL [Concomitant]
     Active Substance: DIMENHYDRINATE
  4. FOLIC ACID [Concomitant]
     Active Substance: FOLIC ACID
  5. CYANOCOBALAMIN [Concomitant]
     Active Substance: CYANOCOBALAMIN
  6. OMEPRAZOLE [Concomitant]
     Active Substance: OMEPRAZOLE
  7. SUCRALFATE [Concomitant]
     Active Substance: SUCRALFATE
  8. DILAUDID [Concomitant]
     Active Substance: HYDROMORPHONE HYDROCHLORIDE
  9. TIMOLOL [Concomitant]
     Active Substance: TIMOLOL\TIMOLOL MALEATE

REACTIONS (8)
  - Urinary tract infection [Recovered/Resolved]
  - Cystitis [Not Recovered/Not Resolved]
  - Large intestinal stenosis [Recovered/Resolved]
  - Weight decreased [Unknown]
  - Diarrhoea [Unknown]
  - Dyspepsia [Unknown]
  - Therapy interrupted [Not Recovered/Not Resolved]
  - Intentional dose omission [Unknown]

NARRATIVE: CASE EVENT DATE: 20241027
